FAERS Safety Report 8681881 (Version 2)
Quarter: 2013Q2

REPORT INFORMATION
  Report Type: Spontaneous
  Country: FR (occurrence: FR)
  Receive Date: 20120725
  Receipt Date: 20130405
  Transmission Date: 20140414
  Serious: Yes (Hospitalization)
  Sender: FDA-Public Use
  Company Number: FR-MSD-1207FRA004209

PATIENT
  Age: 25 Year
  Sex: 0

DRUGS (3)
  1. PUREGON [Suspect]
     Indication: OVULATION INDUCTION
     Dosage: UNK
     Route: 058
     Dates: start: 20110507, end: 20110517
  2. DECAPEPTYL [Suspect]
     Indication: OVULATION INDUCTION
     Dosage: 0.05 MG, QD
     Route: 058
     Dates: start: 20110507, end: 20110517
  3. OVITRELLE [Suspect]
     Indication: OVULATION INDUCTION
     Dosage: 1 DF, ONCE
     Dates: start: 20110518, end: 20110518

REACTIONS (7)
  - Abdominal cavity drainage [Recovered/Resolved]
  - Ovarian hyperstimulation syndrome [Recovered/Resolved]
  - Cardiac murmur [None]
  - Dyspnoea [None]
  - Hypoalbuminaemia [None]
  - Pleural effusion [None]
  - Oxygen saturation decreased [None]
